FAERS Safety Report 12525763 (Version 2)
Quarter: 2016Q3

REPORT INFORMATION
  Report Type: Spontaneous
  Country: FR (occurrence: FR)
  Receive Date: 20160705
  Receipt Date: 20160811
  Transmission Date: 20161109
  Serious: Yes (Hospitalization, Other)
  Sender: FDA-Public Use
  Company Number: FR-BRISTOL-MYERS SQUIBB COMPANY-BMS-2016-053647

PATIENT
  Age: 4 Year

DRUGS (1)
  1. WARFARIN SODIUM. [Suspect]
     Active Substance: WARFARIN SODIUM
     Indication: STENT PLACEMENT
     Dosage: 3 MG, QD
     Route: 065

REACTIONS (7)
  - Haematoma [Unknown]
  - Prothrombin time shortened [Unknown]
  - Drug administered to patient of inappropriate age [Unknown]
  - Compartment syndrome [Unknown]
  - International normalised ratio increased [Recovered/Resolved]
  - Surgery [Unknown]
  - Overdose [Unknown]
